FAERS Safety Report 13077935 (Version 10)
Quarter: 2017Q3

REPORT INFORMATION
  Report Type: Report from Study
  Country: JP (occurrence: JP)
  Receive Date: 20170102
  Receipt Date: 20170824
  Transmission Date: 20171127
  Serious: Yes (Other)
  Sender: FDA-Public Use
  Company Number: JP-ROCHE-1872772

PATIENT
  Age: 46 Year
  Sex: Male
  Weight: 74.3 kg

DRUGS (36)
  1. IBUPROFEN. [Concomitant]
     Active Substance: IBUPROFEN
     Route: 065
     Dates: start: 20170319, end: 20170319
  2. BELLADONNA [Concomitant]
     Active Substance: ATROPA BELLADONNA\HOMEOPATHICS
     Indication: RHINITIS
     Route: 065
     Dates: start: 20170331, end: 20170401
  3. GUAIFENESIN. [Concomitant]
     Active Substance: GUAIFENESIN
     Indication: RHINITIS
     Route: 065
     Dates: start: 20170331, end: 20170401
  4. ARGAMATE [Concomitant]
     Active Substance: CALCIUM POLYSTYRENE SULFONATE
     Route: 065
     Dates: start: 20170306, end: 20170308
  5. IBUPROFEN. [Concomitant]
     Active Substance: IBUPROFEN
     Route: 065
     Dates: start: 20170329, end: 20170330
  6. ANHYDROUS CAFFEINE [Concomitant]
     Active Substance: CAFFEINE
     Indication: RHINITIS
     Route: 065
     Dates: start: 20170319, end: 20170319
  7. ANHYDROUS CAFFEINE [Concomitant]
     Active Substance: CAFFEINE
     Route: 065
     Dates: start: 20170331, end: 20170401
  8. DIPHENYLPYRALINE HYDROCHLORIDE. [Concomitant]
     Active Substance: DIPHENYLPYRALINE HYDROCHLORIDE
     Indication: RHINITIS
     Route: 065
     Dates: start: 20170331, end: 20170401
  9. BAKTAR [Concomitant]
     Active Substance: SULFAMETHOXAZOLE\TRIMETHOPRIM
     Indication: INFECTION
     Route: 065
     Dates: start: 20170105, end: 20170303
  10. ARGAMATE [Concomitant]
     Active Substance: CALCIUM POLYSTYRENE SULFONATE
     Route: 065
     Dates: start: 20170329, end: 20170405
  11. ALLYLISOPROPYLACETYLUREA [Concomitant]
     Active Substance: APRONALIDE
     Route: 065
     Dates: start: 20170329, end: 20170330
  12. ANHYDROUS CAFFEINE [Concomitant]
     Active Substance: CAFFEINE
     Indication: HEADACHE
     Route: 065
     Dates: start: 20170224, end: 20170226
  13. AMOXICILLIN. [Concomitant]
     Active Substance: AMOXICILLIN
     Indication: RHINITIS
     Route: 065
     Dates: start: 20170329, end: 20170405
  14. DIHYDROCODEINE PHOSPHATE [Concomitant]
     Active Substance: DIHYDROCODEINE PHOSPHATE
     Indication: RHINITIS
     Route: 065
     Dates: start: 20170331, end: 20170401
  15. ALENDRONATE [Concomitant]
     Active Substance: ALENDRONATE SODIUM
     Indication: OSTEOPOROSIS
     Route: 065
     Dates: start: 20170101, end: 20170710
  16. ARGAMATE [Concomitant]
     Active Substance: CALCIUM POLYSTYRENE SULFONATE
     Route: 065
     Dates: start: 20170428
  17. IBUPROFEN. [Concomitant]
     Active Substance: IBUPROFEN
     Indication: HEADACHE
     Route: 065
     Dates: start: 20170224, end: 20170226
  18. ANHYDROUS CAFFEINE [Concomitant]
     Active Substance: CAFFEINE
     Route: 065
     Dates: start: 20170329, end: 20170330
  19. DL-METHYLEPHEDRINE HYDROCHLORIDE [Concomitant]
     Active Substance: METHYLEPHEDRINE HYDROCHLORIDE, (+/-)-
     Indication: RHINITIS
     Route: 065
     Dates: start: 20170331, end: 20170401
  20. HIRUDOID OINTMENT [Concomitant]
     Indication: DRY SKIN
     Route: 065
     Dates: start: 20170405
  21. ALLYLISOPROPYLACETYLUREA [Concomitant]
     Active Substance: APRONALIDE
     Indication: HEADACHE
     Route: 065
     Dates: start: 20170224, end: 20170226
  22. LANSOPRAZOLE. [Concomitant]
     Active Substance: LANSOPRAZOLE
     Indication: GASTRITIS
     Route: 065
     Dates: start: 20161230, end: 20170710
  23. BESOFTEN [Concomitant]
     Active Substance: PENTOSAN POLYSULFATE SODIUM
     Indication: PRURITUS
     Route: 065
     Dates: start: 20170104, end: 20170117
  24. ALLYLISOPROPYLACETYLUREA [Concomitant]
     Active Substance: APRONALIDE
     Route: 065
     Dates: start: 20170615, end: 20170615
  25. ANHYDROUS CAFFEINE [Concomitant]
     Active Substance: CAFFEINE
     Route: 065
     Dates: start: 20170615, end: 20170615
  26. ATEZOLIZUMAB. [Suspect]
     Active Substance: ATEZOLIZUMAB
     Indication: NON-SMALL CELL LUNG CANCER STAGE IV
     Dosage: MOST RECENT DOSE OF ATEZOLIZUMAB WAS ADMINISTERED ON 12/DEC/2016 AT 10:58 (CYCLE 1 DAY 1).?ON 10/AP
     Route: 042
     Dates: start: 20161212
  27. RHYTHMY [Concomitant]
     Active Substance: RILMAZAFONE HYDROCHLORIDE
     Indication: INSOMNIA
     Route: 065
     Dates: start: 20161227, end: 20170115
  28. LACTEC [Concomitant]
     Active Substance: CALCIUM CHLORIDE ANHYDROUS\POTASSIUM CHLORIDE\SODIUM CHLORIDE\SODIUM LACTATE
     Indication: RENAL IMPAIRMENT
     Route: 065
     Dates: start: 20161229, end: 20161229
  29. ARGAMATE [Concomitant]
     Active Substance: CALCIUM POLYSTYRENE SULFONATE
     Indication: HYPERKALAEMIA
     Route: 065
     Dates: start: 20170125, end: 20170201
  30. ALLYLISOPROPYLACETYLUREA [Concomitant]
     Active Substance: APRONALIDE
     Route: 065
     Dates: start: 20170319, end: 20170319
  31. SALICYLAMIDE [Concomitant]
     Active Substance: SALICYLAMIDE
     Indication: RHINITIS
     Route: 065
     Dates: start: 20170331, end: 20170401
  32. PROMETHAZINE METHYLENE DISALICYLATE [Concomitant]
     Active Substance: PROMETHAZINE METHYLENEDISALICYLATE
     Indication: RHINITIS
     Route: 065
     Dates: start: 20170331, end: 20170401
  33. TOWATHIEM [Concomitant]
     Active Substance: ACETAMINOPHEN\CAFFEINE\PROMETHAZINE\SALICYLAMIDE
     Indication: VIRAL UPPER RESPIRATORY TRACT INFECTION
     Route: 065
     Dates: start: 20161208, end: 20161223
  34. BESOFTEN [Concomitant]
     Active Substance: PENTOSAN POLYSULFATE SODIUM
     Indication: DRY SKIN
     Route: 065
     Dates: start: 20170405
  35. IBUPROFEN. [Concomitant]
     Active Substance: IBUPROFEN
     Route: 065
     Dates: start: 20170615, end: 20170615
  36. XYZAL [Concomitant]
     Active Substance: LEVOCETIRIZINE DIHYDROCHLORIDE
     Indication: RASH
     Route: 065
     Dates: start: 20170303, end: 20170317

REACTIONS (1)
  - Immune system disorder [Recovered/Resolved]

NARRATIVE: CASE EVENT DATE: 20161222
